FAERS Safety Report 7452956-0 (Version None)
Quarter: 2011Q2

REPORT INFORMATION
  Report Type: 
  Country: None (occurrence: None)
  Receive Date: 20110502
  Receipt Date: 20110420
  Transmission Date: 20111010
  Serious: Yes (Hospitalization)
  Sender: FDA-Public Use
  Company Number: SE-BRISTOL-MYERS SQUIBB COMPANY-15667645

PATIENT
  Age: 65 Year
  Sex: Female

DRUGS (2)
  1. EMCONCOR [Suspect]
     Dates: start: 20110201
  2. ORENCIA [Suspect]
     Dosage: AUTHORIZATION NUMBER:125118 17FEB11-8TH INF 1APR11-9TH INF 500MG
     Dates: start: 20100801

REACTIONS (3)
  - ATRIAL FIBRILLATION [None]
  - VIRAL INFECTION [None]
  - SWELLING FACE [None]
